FAERS Safety Report 12495853 (Version 2)
Quarter: 2016Q3

REPORT INFORMATION
  Report Type: Spontaneous
  Country: BN (occurrence: BN)
  Receive Date: 20160624
  Receipt Date: 20160714
  Transmission Date: 20161109
  Serious: Yes (Disabling, Other)
  Sender: FDA-Public Use
  Company Number: PHHY2016BN084130

PATIENT
  Sex: Female

DRUGS (1)
  1. ZYKADIA [Suspect]
     Active Substance: CERITINIB
     Indication: NON-SMALL CELL LUNG CANCER
     Route: 065

REACTIONS (10)
  - Nausea [Unknown]
  - Hepatic enzyme increased [Not Recovered/Not Resolved]
  - Vomiting [Unknown]
  - Central nervous system lesion [Unknown]
  - Hepatic lesion [Unknown]
  - Pyelonephritis [Unknown]
  - Pain [Unknown]
  - Headache [Unknown]
  - Blood glucose increased [Recovering/Resolving]
  - Cerebral haemorrhage [Unknown]
